FAERS Safety Report 11603292 (Version 1)
Quarter: 2015Q4

REPORT INFORMATION
  Report Type: Spontaneous
  Country: US (occurrence: None)
  Receive Date: 20151005
  Receipt Date: 20151005
  Transmission Date: 20160304
  Serious: Yes (Hospitalization)
  Sender: FDA-Public Use
  Company Number: None

PATIENT
  Age: 72 Year
  Sex: Male
  Weight: 74.84 kg

DRUGS (18)
  1. PLAVIX [Suspect]
     Active Substance: CLOPIDOGREL BISULFATE
     Indication: CARDIAC DISORDER
     Route: 048
  2. METOPROLOL [Concomitant]
     Active Substance: METOPROLOL
  3. VIT B-12 [Concomitant]
  4. COENZYME Q10 [Concomitant]
     Active Substance: UBIDECARENONE
  5. EFFIENT [Concomitant]
     Active Substance: PRASUGREL HYDROCHLORIDE
  6. PLAVIX [Suspect]
     Active Substance: CLOPIDOGREL BISULFATE
     Indication: STENT PLACEMENT
     Route: 048
  7. ARMOUR TYROID [Concomitant]
  8. MULTIVITAMIN [Concomitant]
     Active Substance: VITAMINS
  9. MUSHROOM [Concomitant]
     Active Substance: CULTIVATED MUSHROOM
  10. C [Concomitant]
  11. CRESTOR [Concomitant]
     Active Substance: ROSUVASTATIN CALCIUM
  12. GUGUL [Concomitant]
  13. D [Concomitant]
  14. ASPIRIN. [Concomitant]
     Active Substance: ASPIRIN
  15. RED YEAST RICE [Concomitant]
     Active Substance: DIETARY SUPPLEMENT
  16. FISH OIL [Concomitant]
     Active Substance: FISH OIL
  17. GLUCOSAMINE [Concomitant]
     Active Substance: GLUCOSAMINE
  18. L CARNITINE [Concomitant]
     Active Substance: LEVOCARNITINE

REACTIONS (3)
  - Cardiac disorder [None]
  - Chest pain [None]
  - Myocardial necrosis marker increased [None]
